FAERS Safety Report 9213655 (Version 1)
Quarter: 2013Q2

REPORT INFORMATION
  Report Type: Spontaneous
  Country: US (occurrence: None)
  Receive Date: 20130404
  Receipt Date: 20130404
  Transmission Date: 20140414
  Serious: Yes (Other)
  Sender: FDA-Public Use
  Company Number: None

PATIENT
  Age: 38 Year
  Sex: Male
  Weight: 85.28 kg

DRUGS (1)
  1. LAMOTRIGINE 150MG TABLETS (ZYDUS) [Suspect]
     Dosage: 2 PILLS
     Route: 048
     Dates: start: 20080804, end: 20080820

REACTIONS (3)
  - Nervousness [None]
  - Irritability [None]
  - Abnormal behaviour [None]
